FAERS Safety Report 4346168-7 (Version None)
Quarter: 2004Q2

REPORT INFORMATION
  Report Type: 
  Country: None (occurrence: None)
  Receive Date: 20040423
  Receipt Date: 20040423
  Transmission Date: 20050107
  Serious: Yes (Hospitalization)
  Sender: FDA-Public Use
  Company Number: None

PATIENT
  Age: 73 Year
  Sex: Female
  Weight: 71 kg

DRUGS (7)
  1. TAXOTERE [Suspect]
     Indication: DISEASE RECURRENCE
     Dosage: 80 MG/M2 Q 3 WKS
     Dates: start: 20010403
  2. TAXOTERE [Suspect]
     Indication: OVARIAN CANCER
     Dosage: 80 MG/M2 Q 3 WKS
     Dates: start: 20010403
  3. CARBOPLATIN [Suspect]
     Indication: DISEASE RECURRENCE
     Dosage: AUC 6 Q 3 WKS
     Dates: start: 20040403
  4. CARBOPLATIN [Suspect]
     Indication: OVARIAN CANCER
     Dosage: AUC 6 Q 3 WKS
     Dates: start: 20040403
  5. IODINE [Concomitant]
  6. QUININE [Concomitant]
  7. HYDROCHLOROTHIAZIDE [Concomitant]

REACTIONS (1)
  - PYREXIA [None]
